FAERS Safety Report 12338992 (Version 3)
Quarter: 2016Q2

REPORT INFORMATION
  Report Type: Spontaneous
  Country: US (occurrence: US)
  Receive Date: 20160505
  Receipt Date: 20160512
  Transmission Date: 20160815
  Serious: Yes (Hospitalization)
  Sender: FDA-Public Use
  Company Number: US-PFIZER INC-2016214184

PATIENT
  Age: 79 Year
  Sex: Male
  Weight: 86.18 kg

DRUGS (4)
  1. ADVIL [Concomitant]
     Active Substance: IBUPROFEN
     Dosage: UNK
  2. VIAGRA [Suspect]
     Active Substance: SILDENAFIL CITRATE
     Dosage: 75 MG, UNK (50 MG HE HAD TO TAKE TWO, CUT OF ONE AND MAKE IT A HALF TO MAKE IT 75 MG)
     Route: 048
  3. VIAGRA [Suspect]
     Active Substance: SILDENAFIL CITRATE
     Indication: SEXUAL DYSFUNCTION
     Dosage: 50 MG, ONCE OR TWICE A WEEK
     Route: 048
     Dates: start: 2013
  4. VIAGRA [Suspect]
     Active Substance: SILDENAFIL CITRATE
     Dosage: 100 MG, UNK (TOOK TWO 50 MG)
     Route: 048

REACTIONS (3)
  - Nasopharyngitis [Unknown]
  - Drug ineffective [Unknown]
  - Drug dispensing error [Unknown]
